FAERS Safety Report 16297276 (Version 1)
Quarter: 2019Q2

REPORT INFORMATION
  Report Type: Spontaneous
  Country: US (occurrence: US)
  Receive Date: 20190510
  Receipt Date: 20190510
  Transmission Date: 20190711
  Serious: Yes (Other)
  Sender: FDA-Public Use
  Company Number: US-MYLANLABS-2019M1044332

PATIENT
  Age: 8 Decade
  Sex: Female

DRUGS (1)
  1. HYDROXYCHLOROQUINE [Suspect]
     Active Substance: HYDROXYCHLOROQUINE
     Indication: PRODUCT USED FOR UNKNOWN INDICATION
     Dosage: RECEIVING FROM 12 YEARS
     Route: 065

REACTIONS (3)
  - Night blindness [Not Recovered/Not Resolved]
  - Retinopathy [Not Recovered/Not Resolved]
  - Visual field defect [Not Recovered/Not Resolved]
